FAERS Safety Report 13486988 (Version 1)
Quarter: 2017Q2

REPORT INFORMATION
  Report Type: Spontaneous
  Country: ES (occurrence: ES)
  Receive Date: 20170426
  Receipt Date: 20170426
  Transmission Date: 20170830
  Serious: Yes (Hospitalization)
  Sender: FDA-Public Use
  Company Number: ES-TEVA-762440ISR

PATIENT

DRUGS (3)
  1. ACTONEL [Suspect]
     Active Substance: RISEDRONATE SODIUM
     Dosage: 5 MILLIGRAM DAILY;
     Route: 048
     Dates: start: 20150226, end: 20150301
  2. OMEPRAZOL [Concomitant]
     Active Substance: OMEPRAZOLE
     Route: 048
     Dates: start: 20120927
  3. IDEOS COMPRIMIDOS MASTICABLES, 60 COMPRIMIDOS [Concomitant]
     Active Substance: CALCIUM CARBONATE\CHOLECALCIFEROL
     Route: 048
     Dates: start: 20120731

REACTIONS (9)
  - Hyperkalaemia [None]
  - Hypocalcaemia [Recovered/Resolved]
  - Multiple organ dysfunction syndrome [None]
  - Pruritus [None]
  - Respiratory distress [None]
  - Pain [None]
  - Anaemia [None]
  - Metabolic acidosis [None]
  - Long QT syndrome [Recovered/Resolved]

NARRATIVE: CASE EVENT DATE: 20170301
